FAERS Safety Report 5940148-3 (Version None)
Quarter: 2008Q4

REPORT INFORMATION
  Report Type: 
  Country: None (occurrence: None)
  Receive Date: 20081104
  Receipt Date: 20081103
  Transmission Date: 20090506
  Serious: Yes (Death, Hospitalization, Other)
  Sender: FDA-Public Use
  Company Number: PHBS2008FR05415

PATIENT
  Age: 55 Year
  Sex: Male

DRUGS (4)
  1. CYCLOSPORINE [Suspect]
     Indication: ACUTE GRAFT VERSUS HOST DISEASE IN INTESTINE
  2. STEROIDS NOS [Suspect]
     Indication: ACUTE GRAFT VERSUS HOST DISEASE IN INTESTINE
     Dosage: UNK
  3. POSACONAZOLE [Concomitant]
     Indication: BRONCHOPULMONARY ASPERGILLOSIS
     Dosage: 400 MG, BID
  4. POSACONAZOLE [Concomitant]
     Indication: PROPHYLAXIS

REACTIONS (16)
  - ASTHENIA [None]
  - BRONCHOPULMONARY ASPERGILLOSIS [None]
  - CONVULSION [None]
  - CYTOMEGALOVIRUS INFECTION [None]
  - DIABETES MELLITUS [None]
  - EYE PAIN [None]
  - FACIAL PAIN [None]
  - GASTROINTESTINAL HAEMORRHAGE [None]
  - GRAFT VERSUS HOST DISEASE [None]
  - HEPATIC ENZYME INCREASED [None]
  - NASAL CONGESTION [None]
  - NECROSIS [None]
  - NEUTROPENIA [None]
  - ORBITAL OEDEMA [None]
  - PYREXIA [None]
  - ZYGOMYCOSIS [None]
